FAERS Safety Report 7950247-2 (Version None)
Quarter: 2011Q4

REPORT INFORMATION
  Report Type: 
  Country: None (occurrence: None)
  Receive Date: 20111130
  Receipt Date: 20111121
  Transmission Date: 20120403
  Serious: Yes (Hospitalization)
  Sender: FDA-Public Use
  Company Number: US-BAYER-2011-023374

PATIENT
  Age: 30 Year
  Sex: Female
  Weight: 63.492 kg

DRUGS (8)
  1. CEFPODOXIME PROXETIL [Concomitant]
     Dosage: 200 MG, UNK
     Dates: start: 20070517
  2. CRANTEX LA [Concomitant]
     Dosage: UNK
     Dates: start: 20070530
  3. YASMIN [Suspect]
     Indication: ORAL CONTRACEPTION
     Dosage: UNK
     Route: 048
     Dates: start: 20050701, end: 20070501
  4. YAZ [Suspect]
     Indication: ORAL CONTRACEPTION
     Dosage: UNK
     Dates: start: 20050701, end: 20070501
  5. CEFPROZIL [Concomitant]
     Dosage: 250 UNK, UNK
     Dates: start: 20070530
  6. ALLEGRA-D 12 HOUR [Concomitant]
     Dosage: UNK
     Dates: start: 20070517
  7. ZYRTEC [Concomitant]
     Dosage: 10 MG, UNK
     Dates: start: 20070517
  8. PROMETHAZINE [Concomitant]
     Dosage: 25 MG, UNK
     Dates: start: 20070521

REACTIONS (5)
  - ANXIETY [None]
  - ANHEDONIA [None]
  - SPLENIC INFARCTION [None]
  - INJURY [None]
  - PAIN [None]
